FAERS Safety Report 6388095-X (Version None)
Quarter: 2009Q4

REPORT INFORMATION
  Report Type: 
  Country: None (occurrence: None)
  Receive Date: 20091005
  Receipt Date: 20090921
  Transmission Date: 20100525
  Serious: Yes (Other)
  Sender: FDA-Public Use
  Company Number: DE-MYLANLABS-2009S1016712

PATIENT
  Age: 14 Month
  Sex: Female

DRUGS (1)
  1. LISODURA [Suspect]
     Indication: ACCIDENTAL EXPOSURE
     Route: 048
     Dates: start: 20090921, end: 20090921

REACTIONS (1)
  - ACCIDENTAL DRUG INTAKE BY CHILD [None]
